FAERS Safety Report 8602980-7 (Version None)
Quarter: 2012Q3

REPORT INFORMATION
  Report Type: 
  Country: None (occurrence: None)
  Receive Date: 20120817
  Receipt Date: 20120712
  Transmission Date: 20120928
  Serious: No
  Sender: FDA-Public Use
  Company Number: US-GLAXOSMITHKLINE-A0950452A

PATIENT
  Age: 73 Year
  Sex: Male

DRUGS (4)
  1. LUPRON [Concomitant]
  2. CALCIUM [Concomitant]
  3. VOTRIENT [Suspect]
     Indication: RENAL CELL CARCINOMA
     Dosage: 800MG PER DAY
     Route: 048
     Dates: start: 20111012
  4. NORVASC [Concomitant]

REACTIONS (11)
  - DYSPHAGIA [None]
  - HYPERTENSION [None]
  - ORAL PAIN [None]
  - GLOSSODYNIA [None]
  - GINGIVAL PAIN [None]
  - SOLAR DERMATITIS [None]
  - GINGIVAL ERYTHEMA [None]
  - STOMATITIS [None]
  - LIP PAIN [None]
  - TONGUE DISORDER [None]
  - HEADACHE [None]
